FAERS Safety Report 12802219 (Version 1)
Quarter: 2016Q4

REPORT INFORMATION
  Report Type: Spontaneous
  Country: US (occurrence: US)
  Receive Date: 20161003
  Receipt Date: 20161003
  Transmission Date: 20170207
  Serious: No
  Sender: FDA-Public Use
  Company Number: US-JAZZ-2016-US-012297

PATIENT
  Sex: Female
  Weight: 63.5 kg

DRUGS (25)
  1. DEXTROAMPHET SACCHARAT, AMPHET ASPARTATE, DEXTROAMPHET SULFATE AND AMPHET SULFAT [Concomitant]
     Active Substance: AMPHETAMINE ASPARTATE\AMPHETAMINE SULFATE\DEXTROAMPHETAMINE SACCHARATE\DEXTROAMPHETAMINE SULFATE
  2. ADDERALL [Concomitant]
     Active Substance: AMPHETAMINE ASPARTATE\AMPHETAMINE SULFATE\DEXTROAMPHETAMINE SACCHARATE\DEXTROAMPHETAMINE SULFATE
  3. ALKA-SELTZER PLUS MAXIMUM STRENGTH SINUS [Concomitant]
  4. EXCEDRIN MIGRAINE [Concomitant]
     Active Substance: ACETAMINOPHEN\ASPIRIN\CAFFEINE
  5. FLUCONAZOLE. [Concomitant]
     Active Substance: FLUCONAZOLE
  6. MINOCIN [Concomitant]
     Active Substance: MINOCYCLINE HYDROCHLORIDE
  7. CLEOCIN [Concomitant]
     Active Substance: CLINDAMYCIN PHOSPHATE
  8. PROBIOTIC [Concomitant]
     Active Substance: PROBIOTICS NOS
  9. WOMEN^S ONE DAILY [Concomitant]
  10. MONODOX [Concomitant]
     Active Substance: DOXYCYCLINE
  11. AMOXICILLIN. [Concomitant]
     Active Substance: AMOXICILLIN
  12. RETIN-A [Concomitant]
     Active Substance: TRETINOIN
  13. ACZONE [Concomitant]
     Active Substance: DAPSONE
  14. XYREM [Suspect]
     Active Substance: SODIUM OXYBATE
     Dosage: 4.5 G, BID
     Route: 048
     Dates: start: 201602
  15. FISH OIL [Concomitant]
     Active Substance: FISH OIL
  16. ZYRTEC [Concomitant]
     Active Substance: CETIRIZINE HYDROCHLORIDE
  17. XYREM [Suspect]
     Active Substance: SODIUM OXYBATE
     Dosage: DOSE ADJUSTMENTS
     Route: 048
     Dates: start: 201501, end: 201602
  18. ALDACTONE [Concomitant]
     Active Substance: SPIRONOLACTONE
  19. DIFLUCAN [Concomitant]
     Active Substance: FLUCONAZOLE
  20. MINOCYCLINE HCL [Concomitant]
     Active Substance: MINOCYCLINE HYDROCHLORIDE
  21. NORGESTIMATE AND ETHINYL ESTRADIOL [Concomitant]
     Active Substance: ETHINYL ESTRADIOL\NORGESTIMATE
  22. XYREM [Suspect]
     Active Substance: SODIUM OXYBATE
     Indication: NARCOLEPSY
     Dosage: 2.25 G, BID
     Route: 048
     Dates: start: 201412, end: 201501
  23. PENLAC [Concomitant]
     Active Substance: CICLOPIROX
  24. AMETHIA [Concomitant]
     Active Substance: ETHINYL ESTRADIOL\LEVONORGESTREL
  25. TYLENOL COLD + FLU SEVERE [Concomitant]

REACTIONS (1)
  - Night sweats [Not Recovered/Not Resolved]
